FAERS Safety Report 8887349 (Version 2)
Quarter: 2012Q4

REPORT INFORMATION
  Report Type: 
  Country: US (occurrence: US)
  Receive Date: 20121101
  Receipt Date: 20121121
  Transmission Date: 20130627
  Serious: Yes (Hospitalization, Other)
  Sender: FDA-Public Use
  Company Number: US-PFIZER INC-2012273121

PATIENT
  Age: 51 Year
  Sex: Male
  Weight: 70.75 kg

DRUGS (4)
  1. CHANTIX [Suspect]
     Indication: SMOKING CESSATION THERAPY
     Dosage: 0.5 mg, 1x/day
     Route: 048
     Dates: start: 2011, end: 2011
  2. CHANTIX [Suspect]
     Dosage: 1 mg, 2x/day
     Route: 048
  3. NEXIUM [Concomitant]
     Indication: ACID REFLUX (ESOPHAGEAL)
     Dosage: UNK
  4. ADVAIR DISKUS [Concomitant]
     Indication: COPD
     Dosage: 500/50 mcg, 2x/day

REACTIONS (1)
  - Lung disorder [Unknown]
